FAERS Safety Report 4331288-3 (Version None)
Quarter: 2004Q1

REPORT INFORMATION
  Report Type: 
  Country: None (occurrence: None)
  Receive Date: 20040329
  Receipt Date: 20040116
  Transmission Date: 20041129
  Serious: Yes (Other)
  Sender: FDA-Public Use
  Company Number: HQWYE472819JAN04

PATIENT
  Sex: Male

DRUGS (1)
  1. MYLOTARG [Suspect]
     Dosage: INTRAVENOUS
     Route: 042
     Dates: start: 20040115, end: 20040115

REACTIONS (3)
  - BLOOD CREATINE PHOSPHOKINASE INCREASED [None]
  - MOBILITY DECREASED [None]
  - MYOSITIS [None]
